FAERS Safety Report 14161406 (Version 1)
Quarter: 2017Q4

REPORT INFORMATION
  Report Type: Spontaneous
  Country: US (occurrence: US)
  Receive Date: 20171106
  Receipt Date: 20171106
  Transmission Date: 20180321
  Serious: No
  Sender: FDA-Public Use
  Company Number: US-DUCHESNAY INC.-2033286

PATIENT
  Age: 32 Year
  Sex: Female

DRUGS (1)
  1. DICLEGIS [Suspect]
     Active Substance: DOXYLAMINE SUCCINATE\PYRIDOXINE HYDROCHLORIDE
     Route: 048
     Dates: start: 20170906

REACTIONS (2)
  - Palpitations [Unknown]
  - Dyspnoea [Unknown]
